FAERS Safety Report 4449393-X (Version None)
Quarter: 2004Q3

REPORT INFORMATION
  Report Type: 
  Country: None (occurrence: None)
  Receive Date: 20040914
  Receipt Date: 20040831
  Transmission Date: 20050211
  Serious: Yes (Hospitalization)
  Sender: FDA-Public Use
  Company Number: 2004UW18413

PATIENT
  Sex: Male

DRUGS (3)
  1. SEROQUEL [Suspect]
  2. SEROQUEL [Suspect]
     Dosage: 800 MG PO
     Route: 048
  3. DEPAKOTE [Concomitant]

REACTIONS (2)
  - LIVER FUNCTION TEST ABNORMAL [None]
  - MENTAL DISORDER [None]
